FAERS Safety Report 4876512-3 (Version None)
Quarter: 2006Q1

REPORT INFORMATION
  Report Type: 
  Country: None (occurrence: None)
  Receive Date: 20060110
  Receipt Date: 20060105
  Transmission Date: 20060701
  Serious: Yes (Other)
  Sender: FDA-Public Use
  Company Number: US-GLAXOSMITHKLINE-A0587961A

PATIENT
  Age: 59 Year
  Sex: Male

DRUGS (9)
  1. AVANDIA [Suspect]
     Indication: DIABETES MELLITUS NON-INSULIN-DEPENDENT
     Dosage: 8MG PER DAY
     Route: 048
  2. METFORMIN [Concomitant]
  3. GLIPIZIDE [Concomitant]
  4. ATENOLOL [Concomitant]
  5. NORVASC [Concomitant]
  6. ECOTRIN [Concomitant]
  7. LISINOPRIL [Concomitant]
  8. LIPITOR [Concomitant]
  9. ZETIA [Concomitant]

REACTIONS (8)
  - CARDIAC STRESS TEST ABNORMAL [None]
  - CATHETERISATION CARDIAC [None]
  - CORONARY ARTERY OCCLUSION [None]
  - EYE HAEMORRHAGE [None]
  - GLAUCOMA [None]
  - HYPOGLYCAEMIA [None]
  - PALPITATIONS [None]
  - VISUAL ACUITY REDUCED [None]
